FAERS Safety Report 9627150 (Version 3)
Quarter: 2013Q4

REPORT INFORMATION
  Report Type: Spontaneous
  Country: US (occurrence: US)
  Receive Date: 20131016
  Receipt Date: 20131206
  Transmission Date: 20140711
  Serious: Yes (Other)
  Sender: FDA-Public Use
  Company Number: US-009507513-1309USA010454

PATIENT
  Age: 25 Year
  Sex: Female
  Weight: 77.98 kg

DRUGS (1)
  1. NEXPLANON [Suspect]
     Indication: CONTRACEPTION
     Dosage: DOSAGE FORM: 68 MG
     Route: 059
     Dates: start: 20130806, end: 20130917

REACTIONS (2)
  - Staphylococcus test positive [Recovered/Resolved]
  - Implant site infection [Recovered/Resolved]
